FAERS Safety Report 7066044-9 (Version None)
Quarter: 2010Q4

REPORT INFORMATION
  Report Type: 
  Country: None (occurrence: None)
  Receive Date: 20101027
  Receipt Date: 20100419
  Transmission Date: 20110411
  Serious: Yes (Other)
  Sender: FDA-Public Use
  Company Number: HQWYE270213AUG04

PATIENT
  Sex: Female

DRUGS (7)
  1. PREMPRO [Suspect]
     Indication: HORMONE REPLACEMENT THERAPY
  2. PROVERA [Suspect]
  3. MEDROXYPROGESTERONE ACETATE [Suspect]
     Indication: HORMONE REPLACEMENT THERAPY
  4. FEMHRT [Suspect]
  5. PROMETRIUM [Suspect]
  6. PREMARIN [Suspect]
  7. MEDROXYPROGESTERONE ACETATE [Suspect]

REACTIONS (2)
  - DEEP VEIN THROMBOSIS [None]
  - RETINAL VEIN THROMBOSIS [None]
